FAERS Safety Report 5020908-6 (Version None)
Quarter: 2006Q2

REPORT INFORMATION
  Report Type: 
  Country: None (occurrence: None)
  Receive Date: 20060608
  Receipt Date: 20060529
  Transmission Date: 20061013
  Serious: Yes (Other)
  Sender: FDA-Public Use
  Company Number: PHHO2006CL08680

PATIENT
  Age: 40 Year
  Sex: Female

DRUGS (2)
  1. ZELMAC / HTF 919A [Suspect]
     Dosage: 6 MG, QD
     Route: 048
     Dates: start: 20040101
  2. PARACETAMOL [Concomitant]

REACTIONS (1)
  - CERVIX CARCINOMA [None]
